FAERS Safety Report 19966040 (Version 1)
Quarter: 2021Q4

REPORT INFORMATION
  Report Type: Spontaneous
  Country: US (occurrence: CA)
  Receive Date: 20211019
  Receipt Date: 20211019
  Transmission Date: 20220303
  Serious: Yes (Other)
  Sender: FDA-Public Use
  Company Number: CA-ASTELLAS-2021US038657

PATIENT
  Sex: Male

DRUGS (20)
  1. FLOMAX [Interacting]
     Active Substance: TAMSULOSIN HYDROCHLORIDE
     Indication: Benign prostatic hyperplasia
     Dosage: 0.4 MG, ONCE DAILY
     Route: 065
  2. JARDIANCE [Interacting]
     Active Substance: EMPAGLIFLOZIN
     Indication: Type 2 diabetes mellitus
     Dosage: UNK UNK, UNKNOWN FREQ.
     Route: 065
     Dates: start: 20210726, end: 20210809
  3. ACIPHEX [Concomitant]
     Active Substance: RABEPRAZOLE SODIUM
     Indication: Prophylaxis against gastrointestinal ulcer
     Dosage: 20 MG, QD
     Route: 065
  4. LIPITOR [Concomitant]
     Active Substance: ATORVASTATIN CALCIUM
     Indication: Blood cholesterol decreased
     Dosage: 40 MG, QD
     Route: 065
  5. LIPITOR [Concomitant]
     Active Substance: ATORVASTATIN CALCIUM
     Indication: Cardiovascular event prophylaxis
  6. CALCIUM CARBONATE [Concomitant]
     Active Substance: CALCIUM CARBONATE
     Indication: Bone disorder
     Dosage: 500 MG
     Route: 065
  7. PLAVIX [Concomitant]
     Active Substance: CLOPIDOGREL BISULFATE
     Indication: Antiplatelet therapy
     Dosage: 75 MG, QD
     Route: 065
  8. PLAVIX [Concomitant]
     Active Substance: CLOPIDOGREL BISULFATE
     Indication: Anticoagulant therapy
  9. GLICLAZIDE [Concomitant]
     Active Substance: GLICLAZIDE
     Indication: Blood glucose abnormal
     Dosage: 30 MG, QD
     Route: 065
     Dates: end: 20210722
  10. GLICLAZIDE [Concomitant]
     Active Substance: GLICLAZIDE
     Indication: Blindness
     Dosage: 30 MG, QD
     Route: 065
     Dates: start: 20210927
  11. GLICLAZIDE [Concomitant]
     Active Substance: GLICLAZIDE
     Indication: Prophylaxis
  12. GLICLAZIDE [Concomitant]
     Active Substance: GLICLAZIDE
     Indication: Renal disorder prophylaxis
  13. METFORMIN HYDROCHLORIDE [Concomitant]
     Active Substance: METFORMIN HYDROCHLORIDE
     Indication: Blood glucose abnormal
     Dosage: 500 MG
     Route: 065
  14. JANUVIA [Concomitant]
     Active Substance: SITAGLIPTIN PHOSPHATE
     Indication: Diabetes mellitus
     Dosage: 100 MG, QD
     Route: 065
  15. TESTOSTERONE UNDECANOATE [Concomitant]
     Active Substance: TESTOSTERONE UNDECANOATE
     Indication: Steroid therapy
     Dosage: 40 MG
     Route: 065
  16. VITAMIN B12 [Concomitant]
     Active Substance: CYANOCOBALAMIN
     Indication: Vitamin B12 deficiency
     Dosage: 1200 MG, QD
     Route: 065
  17. VITAMIN D3 [Concomitant]
     Active Substance: CHOLECALCIFEROL
     Indication: Vitamin D deficiency
     Dosage: 2000 IU, QD
     Route: 065
  18. CANDESARTAN [Concomitant]
     Active Substance: CANDESARTAN
     Indication: Hypertension
     Dosage: 16 MG, QD
     Route: 065
     Dates: start: 20201003, end: 20210920
  19. CANDESARTAN [Concomitant]
     Active Substance: CANDESARTAN
     Indication: Prophylaxis
  20. CANDESARTAN [Concomitant]
     Active Substance: CANDESARTAN
     Indication: Drug therapy

REACTIONS (17)
  - Angina pectoris [Unknown]
  - Hyperhidrosis [Unknown]
  - Blood glucose increased [Recovering/Resolving]
  - Arthralgia [Unknown]
  - Pollakiuria [Unknown]
  - Thirst [Unknown]
  - Laryngeal pain [Unknown]
  - Blood potassium increased [Recovered/Resolved]
  - Dehydration [Unknown]
  - Drug interaction [Unknown]
  - Tension headache [Unknown]
  - Dry mouth [Not Recovered/Not Resolved]
  - Dry mouth [Unknown]
  - Nausea [Unknown]
  - Asthenia [Unknown]
  - Ill-defined disorder [Recovered/Resolved]
  - Dizziness [Unknown]

NARRATIVE: CASE EVENT DATE: 20210101
